FAERS Safety Report 6510948-X (Version None)
Quarter: 2009Q4

REPORT INFORMATION
  Report Type: 
  Country: None (occurrence: None)
  Receive Date: 20091222
  Receipt Date: 20090206
  Transmission Date: 20100525
  Serious: No
  Sender: FDA-Public Use
  Company Number: US-ASTRAZENECA-2009UW03539

PATIENT
  Age: 26664 Day
  Sex: Female
  Weight: 61.7 kg

DRUGS (2)
  1. CRESTOR [Suspect]
     Indication: BLOOD CHOLESTEROL
     Route: 048
     Dates: start: 20090115, end: 20090122
  2. CRESTOR [Suspect]
     Route: 048
     Dates: start: 20090122

REACTIONS (3)
  - ARTHRALGIA [None]
  - MYALGIA [None]
  - PARAESTHESIA [None]
